FAERS Safety Report 24385724 (Version 1)
Quarter: 2024Q4

REPORT INFORMATION
  Report Type: Report from Study
  Country: US (occurrence: US)
  Receive Date: 20241001
  Receipt Date: 20241001
  Transmission Date: 20250115
  Serious: Yes (Other)
  Sender: ABBVIE
  Company Number: US-ABBVIE-5938665

PATIENT
  Age: 66 Year
  Sex: Female

DRUGS (1)
  1. RINVOQ [Suspect]
     Active Substance: UPADACITINIB
     Indication: Psoriatic arthropathy
     Route: 048
     Dates: start: 20240812

REACTIONS (3)
  - Ophthalmic vascular thrombosis [Recovering/Resolving]
  - Cardiac procedure complication [Unknown]
  - Pericarditis [Unknown]

NARRATIVE: CASE EVENT DATE: 20240901
